FAERS Safety Report 18679491 (Version 1)
Quarter: 2020Q4

REPORT INFORMATION
  Report Type: Spontaneous
  Country: IT (occurrence: IT)
  Receive Date: 20201230
  Receipt Date: 20201230
  Transmission Date: 20210114
  Serious: Yes (Other)
  Sender: FDA-Public Use
  Company Number: IT-SUN PHARMACEUTICAL INDUSTRIES LTD-2020R1-273410

PATIENT
  Age: 55 Year
  Sex: Male

DRUGS (1)
  1. DESMOPRESSIN [Suspect]
     Active Substance: DESMOPRESSIN
     Indication: VON WILLEBRAND^S DISEASE
     Dosage: UNK
     Route: 042

REACTIONS (1)
  - Therapy non-responder [Unknown]
